FAERS Safety Report 8857929 (Version 1)
Quarter: 2012Q4

REPORT INFORMATION
  Report Type: 
  Country: US (occurrence: US)
  Receive Date: 20121024
  Receipt Date: 20121024
  Transmission Date: 20130627
  Serious: No
  Sender: FDA-Public Use
  Company Number: US-AMGEN-USASP2012003274

PATIENT
  Sex: Female
  Weight: 81.63 kg

DRUGS (8)
  1. ENBREL [Suspect]
     Indication: PRODUCT USED FOR UNKNOWN INDICATION
     Dosage: 50 mg, qwk
     Route: 058
  2. LASIX                              /00032601/ [Concomitant]
     Dosage: 40 mg, UNK
  3. CELEXA                             /00582602/ [Concomitant]
     Dosage: 10 mg, UNK
  4. ZOCOR [Concomitant]
     Dosage: 20 mg, UNK
  5. TRAZODONE [Concomitant]
     Dosage: 100 mg, UNK
  6. XANAX [Concomitant]
     Dosage: 0.5 mg, UNK
  7. LORTAB                             /00607101/ [Concomitant]
     Dosage: 5 mg, UNK
  8. VITAMIN B [Concomitant]

REACTIONS (1)
  - Drug ineffective [Unknown]
